FAERS Safety Report 14523940 (Version 1)
Quarter: 2018Q1

REPORT INFORMATION
  Report Type: Report from Study
  Country: AU (occurrence: AU)
  Receive Date: 20180213
  Receipt Date: 20180213
  Transmission Date: 20180509
  Serious: Yes (Other)
  Sender: FDA-Public Use
  Company Number: AU-ROCHE-2068099

PATIENT
  Age: 53 Year
  Sex: Female

DRUGS (2)
  1. OCREVUS [Suspect]
     Active Substance: OCRELIZUMAB
     Indication: RELAPSING-REMITTING MULTIPLE SCLEROSIS
     Dosage: PT HAD RECEIVED  1A
     Route: 041
     Dates: start: 20171228
  2. OCREVUS [Suspect]
     Active Substance: OCRELIZUMAB
     Dosage: PT HAD RECEIVED 1B
     Route: 041
     Dates: start: 20180111

REACTIONS (2)
  - Multiple sclerosis relapse [Unknown]
  - Rash pruritic [Recovered/Resolved]

NARRATIVE: CASE EVENT DATE: 20180112
